FAERS Safety Report 20506943 (Version 2)
Quarter: 2022Q4

REPORT INFORMATION
  Report Type: Spontaneous
  Country: US (occurrence: US)
  Receive Date: 20220223
  Receipt Date: 20221006
  Transmission Date: 20230113
  Serious: No
  Sender: FDA-Public Use
  Company Number: US-PFIZER INC-202101647154

PATIENT
  Age: 70 Year
  Sex: Male

DRUGS (2)
  1. XELJANZ XR [Suspect]
     Active Substance: TOFACITINIB CITRATE
     Indication: Pain
     Dosage: 2 DF (TAKING UP TO 2 TABLETS )
     Dates: start: 20190801
  2. XELJANZ XR [Suspect]
     Active Substance: TOFACITINIB CITRATE
     Dosage: 1 DF, ALTERNATE DAY (EVERY OTHER DAY)

REACTIONS (3)
  - Drug ineffective for unapproved indication [Unknown]
  - Off label use [Unknown]
  - Off label use [Unknown]
